FAERS Safety Report 7949590-2 (Version None)
Quarter: 2011Q4

REPORT INFORMATION
  Report Type: 
  Country: None (occurrence: None)
  Receive Date: 20111130
  Receipt Date: 20111123
  Transmission Date: 20120403
  Serious: Yes (Hospitalization)
  Sender: FDA-Public Use
  Company Number: FR-EISAI INC-E2090-01866-SPO-FR

PATIENT
  Age: 82 Year
  Sex: Male

DRUGS (8)
  1. BISOPROLOL FUMARATE [Concomitant]
  2. HYPERIUM [Concomitant]
  3. LEXOMIL [Concomitant]
  4. SANMIGRAN [Concomitant]
  5. ZONEGRAN [Suspect]
     Route: 048
     Dates: start: 20110202, end: 20110206
  6. STABLON [Concomitant]
  7. ZONEGRAN [Suspect]
     Route: 048
     Dates: start: 20110207, end: 20110209
  8. ACETAMINOPHEN W/ PROPOXYPHENE HCL [Concomitant]

REACTIONS (1)
  - PANCYTOPENIA [None]
